FAERS Safety Report 6115939-9 (Version None)
Quarter: 2009Q1

REPORT INFORMATION
  Report Type: 
  Country: None (occurrence: None)
  Receive Date: 20090314
  Receipt Date: 20090224
  Transmission Date: 20090719
  Serious: No
  Sender: FDA-Public Use
  Company Number: US-ABBOTT-04P-163-0252007-00

PATIENT
  Sex: Male
  Weight: 115.77 kg

DRUGS (16)
  1. HUMIRA [Suspect]
     Indication: PSORIATIC ARTHROPATHY
     Route: 058
     Dates: start: 20040101, end: 20040225
  2. HUMIRA [Suspect]
     Route: 058
     Dates: end: 20050101
  3. HUMIRA [Suspect]
     Route: 058
     Dates: start: 20050101
  4. HUMIRA [Suspect]
     Route: 058
     Dates: start: 20060101, end: 20080101
  5. HUMIRA [Suspect]
     Route: 058
     Dates: start: 20080101
  6. HYZAAR [Concomitant]
     Indication: HYPERTENSION
     Route: 048
     Dates: start: 20020101
  7. ALLOPURINOL [Concomitant]
     Indication: GOUT
     Route: 048
  8. GLUCOPHAGE [Concomitant]
     Indication: TYPE 1 DIABETES MELLITUS
     Route: 048
  9. WELLBUTRIN [Concomitant]
     Indication: DEPRESSION
     Route: 048
  10. PAXIL [Concomitant]
     Indication: DEPRESSION
     Route: 048
  11. DARVOCET-N 100 [Concomitant]
     Indication: DRUG USE FOR UNKNOWN INDICATION
     Route: 048
  12. VIAGRA [Concomitant]
     Indication: DRUG USE FOR UNKNOWN INDICATION
     Route: 048
  13. DOVONEX [Concomitant]
     Indication: PSORIASIS
     Route: 061
  14. AVANDAMET [Concomitant]
     Indication: DIABETES MELLITUS
  15. GLIPIZIDE [Concomitant]
     Indication: DIABETES MELLITUS
  16. CLONAZEPAM [Concomitant]
     Indication: ANXIETY

REACTIONS (7)
  - BLOOD GLUCOSE INCREASED [None]
  - DRUG INEFFECTIVE [None]
  - INJECTION SITE IRRITATION [None]
  - NASOPHARYNGITIS [None]
  - PSORIASIS [None]
  - SINUSITIS [None]
  - VERTIGO [None]
